FAERS Safety Report 24444355 (Version 2)
Quarter: 2024Q4

REPORT INFORMATION
  Report Type: Report from Study
  Country: US (occurrence: US)
  Receive Date: 20241016
  Receipt Date: 20241017
  Transmission Date: 20250114
  Serious: No
  Sender: ROCHE
  Company Number: US-ROCHE-2802822

PATIENT
  Age: 25 Year
  Sex: Male

DRUGS (6)
  1. RITUXAN [Suspect]
     Active Substance: RITUXIMAB
     Indication: Chronic kidney disease
     Dosage: ON DAY 1 AND 15 AND THEN EVERY 6 MONTHS.
     Route: 041
  2. RITUXAN [Suspect]
     Active Substance: RITUXIMAB
     Indication: Nephritic syndrome
  3. CRESTOR [Concomitant]
     Active Substance: ROSUVASTATIN CALCIUM
  4. PREDNISONE [Concomitant]
     Active Substance: PREDNISONE
  5. LISINOPRIL [Concomitant]
     Active Substance: LISINOPRIL
  6. NUCALA [Concomitant]
     Active Substance: MEPOLIZUMAB

REACTIONS (2)
  - Off label use [Unknown]
  - No adverse event [Unknown]
